FAERS Safety Report 9280757 (Version 1)
Quarter: 2013Q2

REPORT INFORMATION
  Report Type: Spontaneous
  Country: FR (occurrence: FR)
  Receive Date: 20130509
  Receipt Date: 20130509
  Transmission Date: 20140414
  Serious: Yes (Hospitalization)
  Sender: FDA-Public Use
  Company Number: FR-PFIZER INC-2013139440

PATIENT
  Age: 72 Year
  Sex: Male

DRUGS (2)
  1. FELDENE [Suspect]
     Indication: RHEUMATIC DISORDER
     Dosage: UNK
     Route: 048
     Dates: end: 201303
  2. ZOCOR [Concomitant]
     Indication: HYPERCHOLESTEROLAEMIA
     Dosage: 20 MG, UNK
     Route: 048

REACTIONS (1)
  - Thrombocytopenic purpura [Recovered/Resolved]
